FAERS Safety Report 9268673 (Version 2)
Quarter: 2013Q3

REPORT INFORMATION
  Report Type: Spontaneous
  Country: US (occurrence: US)
  Receive Date: 20130502
  Receipt Date: 20130729
  Transmission Date: 20140515
  Serious: No
  Sender: FDA-Public Use
  Company Number: US-009507513-1304USA016280

PATIENT
  Age: 23 Year
  Sex: Female
  Weight: 65.76 kg

DRUGS (1)
  1. IMPLANON [Suspect]
     Indication: CONTRACEPTION
     Dosage: STANDARD
     Route: 059
     Dates: start: 20090826

REACTIONS (6)
  - Device breakage [Unknown]
  - Incorrect drug administration duration [Unknown]
  - Device kink [Unknown]
  - Hypomenorrhoea [Unknown]
  - Injection site pain [Unknown]
  - Unintended pregnancy [Unknown]
